FAERS Safety Report 12730783 (Version 4)
Quarter: 2017Q2

REPORT INFORMATION
  Report Type: Report from Study
  Country: JP (occurrence: JP)
  Receive Date: 20160910
  Receipt Date: 20170602
  Transmission Date: 20170830
  Serious: Yes (Other)
  Sender: FDA-Public Use
  Company Number: JP-AMGEN-JPNCT2015141266

PATIENT
  Age: 68 Year
  Sex: Female
  Weight: 56 kg

DRUGS (103)
  1. ROMIPLATE [Suspect]
     Active Substance: ROMIPLOSTIM
     Dosage: 4 MUG/KG, 1X/WEEK
     Route: 058
     Dates: start: 20121113, end: 20121127
  2. ROMIPLATE [Suspect]
     Active Substance: ROMIPLOSTIM
     Dosage: 5 MUG/KG, QD
     Route: 058
     Dates: start: 20130226, end: 20130226
  3. ROMIPLATE [Suspect]
     Active Substance: ROMIPLOSTIM
     Dosage: 4 MUG/KG, QD
     Route: 058
     Dates: start: 20130730, end: 20130730
  4. ROMIPLATE [Suspect]
     Active Substance: ROMIPLOSTIM
     Dosage: 4 MUG/KG, QD
     Route: 058
     Dates: start: 20130820, end: 20130820
  5. PREDONINE [Suspect]
     Active Substance: PREDNISOLONE
     Dosage: 15 MG, UNK
     Route: 048
     Dates: start: 20120313, end: 20120320
  6. PREDONINE [Suspect]
     Active Substance: PREDNISOLONE
     Dosage: 2.5 MG, UNK
     Route: 048
     Dates: start: 20120410, end: 20120430
  7. PREDONINE [Suspect]
     Active Substance: PREDNISOLONE
     Dosage: 5 MG, UNK
     Route: 048
     Dates: start: 20120508, end: 20120702
  8. PREDONINE [Suspect]
     Active Substance: PREDNISOLONE
     Dosage: 2.5 MG, UNK
     Route: 048
     Dates: start: 20130813, end: 20130819
  9. NEORAL [Concomitant]
     Active Substance: CYCLOSPORINE
     Dosage: 125 MG, UNK
     Route: 048
     Dates: start: 20120321
  10. LIPITOR [Concomitant]
     Active Substance: ATORVASTATIN CALCIUM
     Indication: HYPERLIPIDAEMIA
     Dosage: UNK
     Route: 048
  11. DIFLUCAN [Concomitant]
     Active Substance: FLUCONAZOLE
     Indication: PROPHYLAXIS
     Dosage: UNK
     Route: 065
  12. ROMIPLATE [Suspect]
     Active Substance: ROMIPLOSTIM
     Indication: IMMUNE THROMBOCYTOPENIC PURPURA
     Dosage: 2 MUG/KG, QD
     Route: 058
     Dates: start: 20120306
  13. ROMIPLATE [Suspect]
     Active Substance: ROMIPLOSTIM
     Dosage: 5 MUG/KG, QWK
     Route: 058
     Dates: start: 20121016
  14. ROMIPLATE [Suspect]
     Active Substance: ROMIPLOSTIM
     Dosage: 4 MUG/KG, QD
     Route: 058
     Dates: start: 20130730
  15. ROMIPLATE [Suspect]
     Active Substance: ROMIPLOSTIM
     Dosage: 4 MUG/KG, QD
     Route: 058
     Dates: start: 20120508, end: 20120508
  16. ROMIPLATE [Suspect]
     Active Substance: ROMIPLOSTIM
     Dosage: 4 MUG/KG, 1X/WEEK
     Route: 058
     Dates: start: 20120529, end: 20121009
  17. ROMIPLATE [Suspect]
     Active Substance: ROMIPLOSTIM
     Dosage: 3 MUG/KG, 1X/WEEK
     Route: 058
     Dates: start: 20130618, end: 20130625
  18. PREDONINE [Suspect]
     Active Substance: PREDNISOLONE
     Dosage: 5 MG, UNK
     Route: 048
     Dates: start: 20130118, end: 20130211
  19. PREDONINE [Suspect]
     Active Substance: PREDNISOLONE
     Dosage: 2.5 MG, UNK
     Route: 048
     Dates: start: 20130212, end: 20130225
  20. PREDONINE [Suspect]
     Active Substance: PREDNISOLONE
     Dosage: 10 MG, UNK
     Route: 048
     Dates: start: 20130305, end: 20130311
  21. PREDONINE [Suspect]
     Active Substance: PREDNISOLONE
     Dosage: 5 MG, UNK
     Route: 048
     Dates: start: 20130312, end: 20130429
  22. PREDONINE [Suspect]
     Active Substance: PREDNISOLONE
     Dosage: 7.5 MG, UNK
     Route: 048
     Dates: start: 20130507, end: 20130513
  23. PREDONINE [Suspect]
     Active Substance: PREDNISOLONE
     Dosage: 12.5 MG, UNK
     Route: 048
     Dates: start: 20130702, end: 20130708
  24. DIOVAN [Concomitant]
     Active Substance: VALSARTAN
     Indication: HYPERTENSION
     Dosage: UNK
     Route: 048
  25. TAKEPRON [Concomitant]
     Active Substance: LANSOPRAZOLE
     Indication: PROPHYLAXIS
     Dosage: UNK
     Route: 048
  26. ROMIPLATE [Suspect]
     Active Substance: ROMIPLOSTIM
     Dosage: 3 MUG/KG, QD
     Route: 058
     Dates: start: 20120515
  27. ROMIPLATE [Suspect]
     Active Substance: ROMIPLOSTIM
     Dosage: 4 MUG/KG, QWK
     Route: 058
     Dates: start: 20120529
  28. ROMIPLATE [Suspect]
     Active Substance: ROMIPLOSTIM
     Dosage: 4 MUG/KG, QWK
     Route: 058
     Dates: start: 20121211
  29. ROMIPLATE [Suspect]
     Active Substance: ROMIPLOSTIM
     Dosage: 5 MUG/KG, QD
     Route: 058
     Dates: start: 20130226
  30. ROMIPLATE [Suspect]
     Active Substance: ROMIPLOSTIM
     Dosage: 4 MUG/KG, 1X/WEEK
     Route: 058
     Dates: start: 20130702, end: 20130709
  31. ROMIPLATE [Suspect]
     Active Substance: ROMIPLOSTIM
     Dosage: 3 MUG/KG, 1X/WEEK
     Route: 058
     Dates: start: 20130716, end: 20130723
  32. PREDONINE [Suspect]
     Active Substance: PREDNISOLONE
     Dosage: 15 MG, UNK
     Route: 048
     Dates: start: 20120224, end: 20120226
  33. PREDONINE [Suspect]
     Active Substance: PREDNISOLONE
     Dosage: 30 MG, UNK
     Route: 048
     Dates: start: 20120306, end: 20120312
  34. PREDONINE [Suspect]
     Active Substance: PREDNISOLONE
     Dosage: 10 MG, UNK
     Route: 048
     Dates: start: 20120501, end: 20120507
  35. PREDONINE [Suspect]
     Active Substance: PREDNISOLONE
     Dosage: 2.5 MG, UNK
     Route: 048
     Dates: start: 20120703, end: 20121203
  36. PREDONINE [Suspect]
     Active Substance: PREDNISOLONE
     Dosage: 5 MG, UNK
     Route: 048
     Dates: start: 20130716, end: 20130812
  37. NEORAL [Concomitant]
     Active Substance: CYCLOSPORINE
     Dosage: 125 MG, UNK
     Route: 048
  38. ROMIPLATE [Suspect]
     Active Substance: ROMIPLOSTIM
     Dosage: 3 MUG/KG, QD
     Route: 058
     Dates: start: 20120313
  39. ROMIPLATE [Suspect]
     Active Substance: ROMIPLOSTIM
     Dosage: 7 MUG/KG, QD
     Route: 058
     Dates: start: 20120327
  40. ROMIPLATE [Suspect]
     Active Substance: ROMIPLOSTIM
     Dosage: 4 MUG/KG, QD
     Route: 058
     Dates: start: 20120508
  41. ROMIPLATE [Suspect]
     Active Substance: ROMIPLOSTIM
     Dosage: 5 MUG/KG, QD
     Route: 058
     Dates: start: 20121204
  42. ROMIPLATE [Suspect]
     Active Substance: ROMIPLOSTIM
     Dosage: 3 MUG/KG, QWK
     Route: 058
     Dates: start: 20130618
  43. ROMIPLATE [Suspect]
     Active Substance: ROMIPLOSTIM
     Dosage: 4 MUG/KG, QWK
     Route: 058
     Dates: start: 20130702
  44. ROMIPLATE [Suspect]
     Active Substance: ROMIPLOSTIM
     Dosage: 5 MUG/KG, QD
     Route: 058
     Dates: start: 20120320, end: 20120320
  45. ROMIPLATE [Suspect]
     Active Substance: ROMIPLOSTIM
     Dosage: 5 MUG/KG, 1X/WEEK
     Route: 058
     Dates: start: 20120403, end: 20120417
  46. ROMIPLATE [Suspect]
     Active Substance: ROMIPLOSTIM
     Dosage: 4 MUG/KG, QD
     Route: 058
     Dates: start: 20120424, end: 20120424
  47. ROMIPLATE [Suspect]
     Active Substance: ROMIPLOSTIM
     Dosage: 6 MUG/KG, QD
     Route: 058
     Dates: start: 20120501, end: 20120501
  48. ROMIPLATE [Suspect]
     Active Substance: ROMIPLOSTIM
     Dosage: 5 MUG/KG, QD
     Route: 058
     Dates: start: 20120522, end: 20120522
  49. ROMIPLATE [Suspect]
     Active Substance: ROMIPLOSTIM
     Dosage: 5 MUG/KG, 1X/WEEK
     Route: 058
     Dates: start: 20130108, end: 20130113
  50. ROMIPLATE [Suspect]
     Active Substance: ROMIPLOSTIM
     Dosage: 4 MUG/KG, QD
     Route: 058
     Dates: start: 20130507, end: 20130507
  51. PREDONINE [Suspect]
     Active Substance: PREDNISOLONE
     Indication: IMMUNE THROMBOCYTOPENIC PURPURA
     Dosage: 20 MG, UNK
     Route: 048
     Dates: start: 20120216
  52. PREDONINE [Suspect]
     Active Substance: PREDNISOLONE
     Dosage: 5 MG, UNK
     Route: 048
     Dates: start: 20121211, end: 20130107
  53. PREDONINE [Suspect]
     Active Substance: PREDNISOLONE
     Dosage: 40 MG, UNK
     Route: 048
     Dates: start: 20130115, end: 20130117
  54. NEORAL [Concomitant]
     Active Substance: CYCLOSPORINE
     Indication: IMMUNE THROMBOCYTOPENIC PURPURA
     Dosage: 125 MG, UNK
     Route: 048
     Dates: start: 20120321, end: 20130227
  55. ROMIPLATE [Suspect]
     Active Substance: ROMIPLOSTIM
     Dosage: 6 MUG/KG, QD
     Route: 058
     Dates: start: 20120501
  56. ROMIPLATE [Suspect]
     Active Substance: ROMIPLOSTIM
     Dosage: 4 MUG/KG, QWK
     Route: 058
     Dates: start: 20130305
  57. ROMIPLATE [Suspect]
     Active Substance: ROMIPLOSTIM
     Dosage: 5 MUG/KG, QD
     Route: 058
     Dates: start: 20130430
  58. ROMIPLATE [Suspect]
     Active Substance: ROMIPLOSTIM
     Dosage: 4 MUG/KG, QD
     Route: 058
     Dates: start: 20130507
  59. ROMIPLATE [Suspect]
     Active Substance: ROMIPLOSTIM
     Dosage: 4 MUG/KG, QD
     Route: 058
     Dates: start: 20130820
  60. ROMIPLATE [Suspect]
     Active Substance: ROMIPLOSTIM
     Dosage: 5 MUG/KG, UNK
     Route: 058
     Dates: start: 20130827
  61. ROMIPLATE [Suspect]
     Active Substance: ROMIPLOSTIM
     Dosage: 2 MUG/KG, QD
     Route: 058
     Dates: start: 20120306, end: 20120306
  62. ROMIPLATE [Suspect]
     Active Substance: ROMIPLOSTIM
     Dosage: 7 MUG/KG, QD
     Route: 058
     Dates: start: 20120327, end: 20120327
  63. ROMIPLATE [Suspect]
     Active Substance: ROMIPLOSTIM
     Dosage: 4 MUG/KG, 1X/WEEK
     Route: 058
     Dates: start: 20130115, end: 20130129
  64. PREDONINE [Suspect]
     Active Substance: PREDNISOLONE
     Dosage: 7.5 MG, UNK
     Route: 048
     Dates: start: 20130820, end: 20130826
  65. PREDONINE [Suspect]
     Active Substance: PREDNISOLONE
     Dosage: 17.5 MG, UNK
     Route: 048
     Dates: start: 20130827
  66. ROMIPLATE [Suspect]
     Active Substance: ROMIPLOSTIM
     Indication: IMMUNE THROMBOCYTOPENIC PURPURA
     Dosage: 1 MUG/KG, QD
     Route: 058
     Dates: start: 20120228
  67. ROMIPLATE [Suspect]
     Active Substance: ROMIPLOSTIM
     Dosage: 5 MUG/KG, QWK
     Route: 058
     Dates: start: 20120403
  68. ROMIPLATE [Suspect]
     Active Substance: ROMIPLOSTIM
     Dosage: 4 MUG/KG, QD
     Route: 058
     Dates: start: 20120424
  69. ROMIPLATE [Suspect]
     Active Substance: ROMIPLOSTIM
     Dosage: 5 MUG/KG, QD
     Route: 058
     Dates: start: 20120522
  70. ROMIPLATE [Suspect]
     Active Substance: ROMIPLOSTIM
     Dosage: 5 MUG/KG, QWK
     Route: 058
     Dates: start: 20130108
  71. ROMIPLATE [Suspect]
     Active Substance: ROMIPLOSTIM
     Dosage: 4 MUG/KG, QWK
     Route: 058
     Dates: start: 20130115
  72. ROMIPLATE [Suspect]
     Active Substance: ROMIPLOSTIM
     Dosage: 4 MUG/KG, QWK
     Route: 058
     Dates: start: 20130212
  73. ROMIPLATE [Suspect]
     Active Substance: ROMIPLOSTIM
     Dosage: 3 MUG/KG, QWK
     Route: 058
     Dates: start: 20130806
  74. ROMIPLATE [Suspect]
     Active Substance: ROMIPLOSTIM
     Dosage: 1 MUG/KG, QD
     Route: 058
     Dates: start: 20120228, end: 20120228
  75. ROMIPLATE [Suspect]
     Active Substance: ROMIPLOSTIM
     Dosage: 3 MUG/KG, QD
     Route: 058
     Dates: start: 20120515, end: 20120515
  76. ROMIPLATE [Suspect]
     Active Substance: ROMIPLOSTIM
     Dosage: 4 MUG/KG, 1X/WEEK
     Route: 058
     Dates: start: 20121211, end: 20121225
  77. ROMIPLATE [Suspect]
     Active Substance: ROMIPLOSTIM
     Dosage: 4 MUG/KG, 1X/WEEK
     Route: 058
     Dates: start: 20130212, end: 20130219
  78. ROMIPLATE [Suspect]
     Active Substance: ROMIPLOSTIM
     Dosage: 4 MUG/KG, 1X/WEEK
     Route: 058
     Dates: start: 20130305, end: 20130423
  79. ROMIPLATE [Suspect]
     Active Substance: ROMIPLOSTIM
     Dosage: 3 MUG/KG, 1X/WEEK
     Route: 058
     Dates: start: 20130806, end: 20130813
  80. PREDONINE [Suspect]
     Active Substance: PREDNISOLONE
     Dosage: 40 MG, UNK
     Route: 048
     Dates: start: 20120227, end: 20120305
  81. PREDONINE [Suspect]
     Active Substance: PREDNISOLONE
     Dosage: 5 MG, UNK
     Route: 048
     Dates: start: 20120403, end: 20120409
  82. PREDONINE [Suspect]
     Active Substance: PREDNISOLONE
     Dosage: 50 MG, UNK
     Route: 048
     Dates: start: 20130108, end: 20130114
  83. PREDONINE [Suspect]
     Active Substance: PREDNISOLONE
     Dosage: 15 MG, UNK
     Route: 048
     Dates: start: 20130430, end: 20130506
  84. PREDONINE [Suspect]
     Active Substance: PREDNISOLONE
     Dosage: 5 MG, UNK
     Route: 048
     Dates: start: 20130514, end: 20130701
  85. PREDONINE [Suspect]
     Active Substance: PREDNISOLONE
     Dosage: 7.5 MG, UNK
     Route: 048
     Dates: start: 20130709, end: 20130715
  86. ROMIPLATE [Suspect]
     Active Substance: ROMIPLOSTIM
     Dosage: 5 MUG/KG, QD
     Route: 058
     Dates: start: 20120320
  87. ROMIPLATE [Suspect]
     Active Substance: ROMIPLOSTIM
     Dosage: 3 MUG/KG, QWK
     Route: 058
     Dates: start: 20130514
  88. ROMIPLATE [Suspect]
     Active Substance: ROMIPLOSTIM
     Dosage: 4 MUG/KG, QD
     Route: 058
     Dates: start: 20130611
  89. ROMIPLATE [Suspect]
     Active Substance: ROMIPLOSTIM
     Dosage: 5 MUG/KG, QD
     Route: 058
     Dates: start: 20130430, end: 20130430
  90. ROMIPLATE [Suspect]
     Active Substance: ROMIPLOSTIM
     Dosage: 4 MUG/KG, QD
     Route: 058
     Dates: start: 20130611, end: 20130611
  91. PREDONINE [Suspect]
     Active Substance: PREDNISOLONE
     Dosage: 25 MG, UNK
     Route: 048
     Dates: start: 20130226, end: 20130304
  92. VENOGLOBULIN IH [Concomitant]
     Active Substance: HUMAN IMMUNOGLOBULIN G
     Indication: IMMUNE THROMBOCYTOPENIC PURPURA
     Dosage: 20000 MG, UNK
     Route: 065
     Dates: start: 20120301, end: 20120305
  93. NORVASC [Concomitant]
     Active Substance: AMLODIPINE BESYLATE
     Indication: HYPERTENSION
     Dosage: UNK
     Route: 048
  94. ROMIPLATE [Suspect]
     Active Substance: ROMIPLOSTIM
     Dosage: 4 MUG/KG, QWK
     Route: 058
     Dates: start: 20121113
  95. ROMIPLATE [Suspect]
     Active Substance: ROMIPLOSTIM
     Dosage: 3 MUG/KG, QWK
     Route: 058
     Dates: start: 20130716
  96. ROMIPLATE [Suspect]
     Active Substance: ROMIPLOSTIM
     Dosage: 3 MUG/KG, QD
     Route: 058
     Dates: start: 20120313, end: 20120313
  97. ROMIPLATE [Suspect]
     Active Substance: ROMIPLOSTIM
     Dosage: 5 MUG/KG, 1X/WEEK
     Route: 058
     Dates: start: 20121016, end: 20121106
  98. ROMIPLATE [Suspect]
     Active Substance: ROMIPLOSTIM
     Dosage: 5 MUG/KG, QD
     Route: 058
     Dates: start: 20121204, end: 20121204
  99. ROMIPLATE [Suspect]
     Active Substance: ROMIPLOSTIM
     Dosage: 3 MUG/KG, 1X/WEEK
     Route: 058
     Dates: start: 20130514, end: 20130604
  100. PREDONINE [Suspect]
     Active Substance: PREDNISOLONE
     Indication: IMMUNE THROMBOCYTOPENIC PURPURA
     Dosage: 20 MG, UNK
     Route: 048
     Dates: start: 20120216, end: 20120223
  101. PREDONINE [Suspect]
     Active Substance: PREDNISOLONE
     Dosage: 12.5 MG, UNK
     Route: 048
     Dates: start: 20120321, end: 20120402
  102. PREDONINE [Suspect]
     Active Substance: PREDNISOLONE
     Dosage: 15 MG, UNK
     Route: 048
     Dates: start: 20121204, end: 20121210
  103. BONALON [Concomitant]
     Active Substance: ALENDRONATE SODIUM
     Indication: PROPHYLAXIS
     Dosage: UNK
     Route: 065

REACTIONS (5)
  - Anaemia [Recovered/Resolved]
  - White blood cell count increased [Not Recovered/Not Resolved]
  - Neutrophil count increased [Not Recovered/Not Resolved]
  - Headache [Recovered/Resolved]
  - Myelopathy [Not Recovered/Not Resolved]

NARRATIVE: CASE EVENT DATE: 20120312
